FAERS Safety Report 10078979 (Version 1)
Quarter: 2014Q2

REPORT INFORMATION
  Report Type: Spontaneous
  Country: JP (occurrence: JP)
  Receive Date: 20140415
  Receipt Date: 20140415
  Transmission Date: 20141212
  Serious: Yes (Other)
  Sender: FDA-Public Use
  Company Number: JP-JNJFOC-20140407373

PATIENT
  Sex: 0

DRUGS (4)
  1. INFLIXIMAB, RECOMBINANT [Suspect]
     Indication: CROHN^S DISEASE
     Dosage: 5-7 WEEKS
     Route: 042
  2. INFLIXIMAB, RECOMBINANT [Suspect]
     Indication: CROHN^S DISEASE
     Dosage: 5-7 WEEKS
     Route: 042
  3. INFLIXIMAB, RECOMBINANT [Suspect]
     Indication: CROHN^S DISEASE
     Route: 042
  4. AZATHIOPRINE [Concomitant]
     Route: 065

REACTIONS (3)
  - Surgery [Unknown]
  - Intestinal stenosis [Unknown]
  - Drug ineffective [Unknown]
